FAERS Safety Report 4741409-6 (Version None)
Quarter: 2005Q3

REPORT INFORMATION
  Report Type: 
  Country: None (occurrence: None)
  Receive Date: 20050808
  Receipt Date: 20050726
  Transmission Date: 20060218
  Serious: Yes (Hospitalization)
  Sender: FDA-Public Use
  Company Number: FABR-11169

PATIENT
  Age: 46 Year
  Sex: Female
  Weight: 88.1 kg

DRUGS (5)
  1. FABRAZYME [Suspect]
     Indication: FABRY'S DISEASE
     Dosage: 1 MG/KG Q2WKS IV
     Route: 042
     Dates: start: 20050630
  2. ALTACE [Concomitant]
  3. TOPROL-XL [Concomitant]
  4. PAXIL [Concomitant]
  5. HYDROCHLOROTHIAZIDE [Concomitant]

REACTIONS (3)
  - CARDIAC ARREST [None]
  - CARDIAC PROCEDURE COMPLICATION [None]
  - SUPRAVENTRICULAR TACHYCARDIA [None]
